FAERS Safety Report 17314369 (Version 6)
Quarter: 2025Q3

REPORT INFORMATION
  Report Type: Spontaneous
  Country: US (occurrence: US)
  Receive Date: 20200124
  Receipt Date: 20250710
  Transmission Date: 20251021
  Serious: Yes (Other)
  Sender: JAZZ
  Company Number: US-GW PHARMA-202001USGW00197

PATIENT
  Sex: Female

DRUGS (2)
  1. EPIDIOLEX [Suspect]
     Active Substance: CANNABIDIOL
     Indication: Seizure
     Dosage: 130 MILLIGRAM, BID
     Route: 048
     Dates: start: 201911
  2. EPIDIOLEX [Suspect]
     Active Substance: CANNABIDIOL
     Indication: Lennox-Gastaut syndrome

REACTIONS (4)
  - Seizure [Recovered/Resolved]
  - Seizure [Recovered/Resolved]
  - Vomiting [Not Recovered/Not Resolved]
  - Extra dose administered [Unknown]
